FAERS Safety Report 9859508 (Version 3)
Quarter: 2014Q1

REPORT INFORMATION
  Report Type: Spontaneous
  Country: US (occurrence: US)
  Receive Date: 20140131
  Receipt Date: 20140207
  Transmission Date: 20141002
  Serious: Yes (Hospitalization)
  Sender: FDA-Public Use
  Company Number: US-B.I. PHARMACEUTICALS,INC./RIDGEFIELD-2012-BP-11013BP

PATIENT
  Sex: Male
  Weight: 86.18 kg

DRUGS (12)
  1. PRADAXA [Suspect]
     Indication: ATRIAL FIBRILLATION
     Dosage: 300 MG
     Dates: start: 20120311, end: 20120315
  2. PRADAXA [Suspect]
     Indication: ANTICOAGULANT THERAPY
     Dosage: 150 MG
  3. GLIPIZIDE [Concomitant]
     Dosage: 20 MG
     Route: 048
     Dates: start: 200503, end: 201212
  4. LOVASTATIN [Concomitant]
     Dosage: 10 MG
     Route: 048
     Dates: start: 2007, end: 201212
  5. LOSARTAN [Concomitant]
     Dosage: 100 MG
     Route: 048
     Dates: start: 2009, end: 201212
  6. VERAPAMIL [Concomitant]
     Dosage: 360 MG
     Route: 048
     Dates: start: 200503, end: 201212
  7. METFORMIN [Concomitant]
     Dosage: 1500 MG
     Route: 048
     Dates: start: 200503, end: 201212
  8. LANTUS INSULIN [Concomitant]
     Route: 058
     Dates: start: 200805, end: 201212
  9. LORTAB (HYDROCODONE) [Concomitant]
     Route: 048
     Dates: start: 200503, end: 201212
  10. ALPRAZOLAM (XANAX) [Concomitant]
     Dosage: 1.5 MG
     Route: 048
     Dates: start: 200901, end: 201205
  11. ALKA SELTZER [Concomitant]
     Dates: start: 200901, end: 201205
  12. LASIX [Concomitant]
     Dosage: 40 MG
     Route: 048

REACTIONS (5)
  - Gastrointestinal haemorrhage [Unknown]
  - Epistaxis [Unknown]
  - Respiratory failure [Unknown]
  - Gastritis [Unknown]
  - Anaemia [Unknown]
